FAERS Safety Report 11230859 (Version 1)
Quarter: 2015Q2

REPORT INFORMATION
  Report Type: Spontaneous
  Country: IT (occurrence: None)
  Receive Date: 20150629
  Receipt Date: 20150629
  Transmission Date: 20150821
  Serious: Yes (Hospitalization)
  Sender: FDA-Public Use
  Company Number: UCM201506-000423

PATIENT
  Age: 75 Year
  Sex: Female

DRUGS (5)
  1. ASPIRIN (ACETYLSALICYLIC ACID) (ACETYLSALICYLIC ACID) [Suspect]
     Active Substance: ASPIRIN
  2. HYDROCHLOROTHIAZIDE (HYDROCHLOROTHIAZIDE) (HYDROCHLOROTHIAZIDE) [Suspect]
     Active Substance: HYDROCHLOROTHIAZIDE
  3. AMILORIDE [Suspect]
     Active Substance: AMILORIDE
  4. BENAZEPRIL [Suspect]
     Active Substance: BENAZEPRIL\BENAZEPRIL HYDROCHLORIDE
  5. LERCANIDIPINE (LERCANIDIPINE) (LERCANIDIPINE) [Suspect]
     Active Substance: LERCANIDIPINE

REACTIONS (8)
  - Cardiac disorder [None]
  - Myocardial infarction [None]
  - Atrial fibrillation [None]
  - Hyperkalaemia [None]
  - Device malfunction [None]
  - Muscular weakness [None]
  - Quadriparesis [None]
  - Dysarthria [None]
